FAERS Safety Report 24749553 (Version 1)
Quarter: 2024Q4

REPORT INFORMATION
  Report Type: Spontaneous
  Country: CN (occurrence: CN)
  Receive Date: 20241218
  Receipt Date: 20241218
  Transmission Date: 20250114
  Serious: Yes (Other)
  Sender: PFIZER
  Company Number: CN-PFIZER INC-PV202400163750

PATIENT
  Age: 9 Year
  Sex: Female
  Weight: 27 kg

DRUGS (6)
  1. AZITHROMYCIN [Suspect]
     Active Substance: AZITHROMYCIN
     Indication: Nasopharyngitis
     Dosage: 0.25 G, 1X/DAY
     Route: 048
     Dates: start: 20240319, end: 20240322
  2. CEFDINIR [Suspect]
     Active Substance: CEFDINIR
     Indication: Nasopharyngitis
     Dosage: 100 MG, 3X/DAY
     Route: 048
     Dates: start: 20231220, end: 20231230
  3. ACETAMINOPHEN\BOS TAURUS GALLSTONE\CHLORPHENIRAMINE MALEATE [Concomitant]
     Active Substance: ACETAMINOPHEN\BOS TAURUS GALLSTONE\CHLORPHENIRAMINE MALEATE
     Indication: Nasopharyngitis
     Dosage: 2 DF, 3X/DAY
     Route: 048
     Dates: start: 20240319, end: 20240322
  4. BROMHEXINE [Concomitant]
     Active Substance: BROMHEXINE
     Indication: Nasopharyngitis
     Dosage: 1 DF, 3X/DAY
     Route: 048
     Dates: start: 20231220, end: 20231230
  5. PROMETHAZINE HYDROCHLORIDE [Concomitant]
     Active Substance: PROMETHAZINE HYDROCHLORIDE
     Indication: Nasopharyngitis
     Dosage: 0.5 DF, 3X/DAY
     Route: 048
     Dates: start: 20240319, end: 20240322
  6. NAPROXEN [Concomitant]
     Active Substance: NAPROXEN
     Indication: Nasopharyngitis
     Dosage: 250 MG, 3X/DAY
     Route: 048
     Dates: start: 20231220, end: 20231230

REACTIONS (3)
  - Epidermolysis bullosa [Recovering/Resolving]
  - Drug eruption [Recovering/Resolving]
  - Off label use [Unknown]

NARRATIVE: CASE EVENT DATE: 20240319
